FAERS Safety Report 12946515 (Version 2)
Quarter: 2016Q4

REPORT INFORMATION
  Report Type: Report from Study
  Country: DE (occurrence: DE)
  Receive Date: 20161116
  Receipt Date: 20161215
  Transmission Date: 20170207
  Serious: Yes (Hospitalization, Other)
  Sender: FDA-Public Use
  Company Number: PHHY2016DE151654

PATIENT
  Sex: Male
  Weight: 125 kg

DRUGS (2)
  1. COSENTYX [Suspect]
     Active Substance: SECUKINUMAB
     Indication: PSORIASIS
     Dosage: 300 MG, UNK
     Route: 058
     Dates: start: 201601
  2. COSENTYX [Suspect]
     Active Substance: SECUKINUMAB
     Dosage: ON EVERY 14TH OF THE MONTH
     Route: 065

REACTIONS (16)
  - Sleep apnoea syndrome [Unknown]
  - Hypertensive crisis [Recovered/Resolved]
  - Escherichia urinary tract infection [Recovered/Resolved]
  - Obesity [Unknown]
  - Dysuria [Unknown]
  - Hypertriglyceridaemia [Unknown]
  - Acute coronary syndrome [Recovered/Resolved]
  - Angina pectoris [Unknown]
  - Pyrexia [Unknown]
  - Headache [Unknown]
  - Diabetes mellitus inadequate control [Recovered/Resolved]
  - Dilatation atrial [Unknown]
  - Diastolic dysfunction [Unknown]
  - Chronic obstructive pulmonary disease [Unknown]
  - Chest pain [Unknown]
  - Arteriosclerosis coronary artery [Unknown]

NARRATIVE: CASE EVENT DATE: 20160611
